FAERS Safety Report 9192452 (Version 2)
Quarter: 2013Q2

REPORT INFORMATION
  Report Type: Spontaneous
  Country: US (occurrence: None)
  Receive Date: 20120703
  Receipt Date: 20121031
  Transmission Date: 20140414
  Serious: Yes (Other)
  Sender: FDA-Public Use
  Company Number: PHEH2012US009398

PATIENT
  Age: 59 Year
  Sex: Female
  Weight: 59.6 kg

DRUGS (4)
  1. GILENYA [Suspect]
     Indication: MULTIPLE SCLEROSIS
     Route: 048
     Dates: start: 20120208
  2. LORTAB (HYDROCODONE BITARTRATE, PARACETAMOL) [Concomitant]
  3. BACLOFEN [Concomitant]
  4. ASA (ACETYLSALICYLIC ACID) [Concomitant]

REACTIONS (5)
  - Abdominal pain [None]
  - Fatigue [None]
  - Abdominal pain upper [None]
  - Epigastric discomfort [None]
  - Decreased appetite [None]
